FAERS Safety Report 7474832-X (Version None)
Quarter: 2011Q2

REPORT INFORMATION
  Report Type: 
  Country: None (occurrence: None)
  Receive Date: 20110512
  Receipt Date: 20110406
  Transmission Date: 20111010
  Serious: Yes (Other)
  Sender: FDA-Public Use
  Company Number: US-BAYER-201027077NA

PATIENT
  Age: 20 Year
  Sex: Female
  Weight: 67.12 kg

DRUGS (4)
  1. OMEPRAZOLE [Concomitant]
     Dosage: 20 MG, BID
     Route: 048
     Dates: start: 20091209
  2. YAZ [Suspect]
     Indication: PRODUCT USED FOR UNKNOWN INDICATION
     Dosage: UNK
     Route: 048
     Dates: start: 20061101, end: 20091201
  3. PHENERGAN [Concomitant]
     Dosage: 25 MG, TID
     Dates: start: 20091209
  4. YASMIN [Suspect]
     Indication: PRODUCT USED FOR UNKNOWN INDICATION
     Dosage: UNK
     Dates: start: 20060401, end: 20060701

REACTIONS (6)
  - ABDOMINAL PAIN [None]
  - PAIN [None]
  - BACTERIAL INFECTION [None]
  - BILIARY DYSKINESIA [None]
  - ANXIETY [None]
  - CHOLECYSTITIS CHRONIC [None]
